FAERS Safety Report 4427478-1 (Version None)
Quarter: 2004Q3

REPORT INFORMATION
  Report Type: 
  Country: None (occurrence: None)
  Receive Date: 20040812
  Receipt Date: 20040728
  Transmission Date: 20050211
  Serious: Yes (Other)
  Sender: FDA-Public Use
  Company Number: 2004UW15823

PATIENT
  Age: 80 Year
  Sex: Female

DRUGS (1)
  1. SEROQUEL [Suspect]
     Indication: SCHIZOPHRENIA
     Dosage: 600 MG HS PO
     Route: 048
     Dates: start: 20040101

REACTIONS (6)
  - ASTHENIA [None]
  - DECREASED APPETITE [None]
  - HALLUCINATION, AUDITORY [None]
  - PLATELET COUNT DECREASED [None]
  - SOMNOLENCE [None]
  - WEIGHT DECREASED [None]
